FAERS Safety Report 13283613 (Version 1)
Quarter: 2017Q1

REPORT INFORMATION
  Report Type: Spontaneous
  Country: DE (occurrence: DE)
  Receive Date: 20170301
  Receipt Date: 20170301
  Transmission Date: 20170428
  Serious: Yes (Hospitalization)
  Sender: FDA-Public Use
  Company Number: DE-009507513-1702DEU009877

PATIENT
  Age: 31 Year
  Sex: Male

DRUGS (8)
  1. REMERGIL [Suspect]
     Active Substance: MIRTAZAPINE
     Dosage: 30 MG, QD
     Dates: start: 20100419, end: 20100818
  2. AKINETON [Suspect]
     Active Substance: BIPERIDEN HYDROCHLORIDE
     Dosage: 0.5 DF, QD
     Dates: start: 20100419, end: 20100818
  3. ABILIFY [Concomitant]
     Active Substance: ARIPIPRAZOLE
     Dosage: 20 MG, QD
     Route: 065
     Dates: start: 20100419, end: 20100818
  4. NEXIUM I.V. [Concomitant]
     Active Substance: ESOMEPRAZOLE SODIUM
     Dosage: 40 MG, QD
     Route: 065
     Dates: start: 20100419, end: 20100818
  5. SOLIAN [Concomitant]
     Active Substance: AMISULPRIDE
     Dosage: 500 MG, QD
     Route: 065
     Dates: start: 20100419, end: 20100818
  6. EDRONAX [Suspect]
     Active Substance: REBOXETINE MESYLATE
     Dosage: 12 MG, QD
     Route: 065
     Dates: start: 20100419, end: 20100819
  7. LYRICA [Suspect]
     Active Substance: PREGABALIN
     Dosage: 300 MG, QD
     Dates: start: 20100419, end: 20100818
  8. GASTROZEPIN [Suspect]
     Active Substance: PIRENZEPINE HYDROCHLORIDE
     Dosage: 50 MG, QD
     Dates: start: 20100419, end: 20100818

REACTIONS (1)
  - Urinary hesitation [Recovered/Resolved]

NARRATIVE: CASE EVENT DATE: 20100818
